FAERS Safety Report 20797831 (Version 1)
Quarter: 2022Q2

REPORT INFORMATION
  Report Type: Spontaneous
  Country: US (occurrence: None)
  Receive Date: 20220506
  Receipt Date: 20220506
  Transmission Date: 20220721
  Serious: No
  Sender: FDA-Public Use
  Company Number: None

PATIENT
  Sex: Female

DRUGS (1)
  1. CUTAQUIG [Suspect]
     Active Substance: HUMAN IMMUNOGLOBULIN G
     Indication: Blood immunoglobulin G decreased
     Dosage: FREQUENCY : WEEKLY;?
     Route: 058
     Dates: start: 202204

REACTIONS (9)
  - Needle issue [None]
  - Abdominal pain upper [None]
  - Flank pain [None]
  - Cough [None]
  - Productive cough [None]
  - Headache [None]
  - Pruritus [None]
  - Infusion site urticaria [None]
  - Infusion site erythema [None]
